FAERS Safety Report 4335358-5 (Version None)
Quarter: 2004Q2

REPORT INFORMATION
  Report Type: 
  Country: None (occurrence: None)
  Receive Date: 20040409
  Receipt Date: 20040315
  Transmission Date: 20050107
  Serious: Yes (Other)
  Sender: FDA-Public Use
  Company Number: 200413184GDDC

PATIENT
  Sex: 0

DRUGS (1)
  1. LANTUS [Suspect]
     Dates: start: 20040301

REACTIONS (2)
  - CONVULSION [None]
  - SYNCOPE [None]
